FAERS Safety Report 6349564-1 (Version None)
Quarter: 2009Q3

REPORT INFORMATION
  Report Type: 
  Country: None (occurrence: None)
  Receive Date: 20090911
  Receipt Date: 20090831
  Transmission Date: 20100115
  Serious: Yes (Hospitalization)
  Sender: FDA-Public Use
  Company Number: GR-PFIZER INC-2009232620

PATIENT
  Age: 79 Year

DRUGS (3)
  1. SERTRALINE HCL [Suspect]
     Indication: MAJOR DEPRESSION
     Dosage: 200 MG, UNK
  2. METFORMIN [Concomitant]
     Indication: TYPE 2 DIABETES MELLITUS
     Dosage: 1700 MG, 1X/DAY
  3. LEVOTHYROXINE [Concomitant]
     Indication: HYPOTHYROIDISM
     Dosage: 0.1 MG, 1X/DAY

REACTIONS (11)
  - BLOOD CREATINE PHOSPHOKINASE INCREASED [None]
  - BLOOD PRESSURE FLUCTUATION [None]
  - CONFUSIONAL STATE [None]
  - CONVULSION [None]
  - EXTRAPYRAMIDAL DISORDER [None]
  - HYPERPYREXIA [None]
  - MUSCLE RIGIDITY [None]
  - NEUROLEPTIC MALIGNANT SYNDROME [None]
  - PSYCHOMOTOR RETARDATION [None]
  - TACHYCARDIA [None]
  - WHITE BLOOD CELL COUNT INCREASED [None]
